FAERS Safety Report 7657451-1 (Version None)
Quarter: 2011Q3

REPORT INFORMATION
  Report Type: 
  Country: None (occurrence: None)
  Receive Date: 20110804
  Receipt Date: 20110803
  Transmission Date: 20111222
  Serious: Yes (Hospitalization, Other)
  Sender: FDA-Public Use
  Company Number: US-ABBOTT-11P-163-0841378-00

PATIENT
  Sex: Male
  Weight: 93.978 kg

DRUGS (13)
  1. CALCIUM ACETATE [Concomitant]
     Indication: MINERAL SUPPLEMENTATION
  2. SALAGEN [Concomitant]
     Indication: DRY MOUTH
  3. CARDIZEM [Concomitant]
     Indication: HEART RATE INCREASED
  4. OXYCODONE HCL [Concomitant]
     Indication: PAIN
  5. A-Z VITAMIN [Concomitant]
     Indication: VITAMIN SUPPLEMENTATION
  6. AMBIEN [Concomitant]
     Indication: SLEEP DISORDER THERAPY
  7. ARAVA [Concomitant]
     Indication: RHEUMATOID ARTHRITIS
  8. PREDNISONE [Concomitant]
     Indication: RHEUMATOID ARTHRITIS
  9. NAPROXEN [Concomitant]
     Indication: RHEUMATOID ARTHRITIS
  10. HUMIRA [Suspect]
     Indication: RHEUMATOID ARTHRITIS
     Dates: start: 20090901, end: 20090901
  11. ASPIRIN [Concomitant]
     Indication: ANTICOAGULANT THERAPY
  12. ATENOLOL [Concomitant]
     Indication: HEART RATE INCREASED
  13. METHOTREXATE [Concomitant]
     Indication: RHEUMATOID ARTHRITIS

REACTIONS (11)
  - WOUND INFECTION [None]
  - JOINT EFFUSION [None]
  - MOBILITY DECREASED [None]
  - WOUND DRAINAGE [None]
  - IMPAIRED HEALING [None]
  - WOUND DEHISCENCE [None]
  - OSTEOMYELITIS [None]
  - ARTHROPATHY [None]
  - FEELING ABNORMAL [None]
  - PURULENT DISCHARGE [None]
  - VISUAL IMPAIRMENT [None]
